FAERS Safety Report 25932439 (Version 2)
Quarter: 2025Q4

REPORT INFORMATION
  Report Type: Report from Study
  Country: EU (occurrence: EU)
  Receive Date: 20251017
  Receipt Date: 20251019
  Transmission Date: 20260118
  Serious: Yes (Hospitalization, Other)
  Sender: ABBVIE
  Company Number: EU-ABBVIE-6287237

PATIENT
  Sex: Female

DRUGS (1)
  1. FOSCARBIDOPA\FOSLEVODOPA [Suspect]
     Active Substance: FOSCARBIDOPA\FOSLEVODOPA
     Indication: Parkinson^s disease
     Dosage: CRN: 0.26 ML/H, CR: 0.31 ML/H, CRH: 0.34 ML/H, ED: 0.15 ML
     Route: 058
     Dates: start: 20241028

REACTIONS (4)
  - Hospitalisation [Not Recovered/Not Resolved]
  - Dizziness [Unknown]
  - Anxiety [Not Recovered/Not Resolved]
  - Hysterectomy [Unknown]
